FAERS Safety Report 9144902 (Version 1)
Quarter: 2013Q1

REPORT INFORMATION
  Report Type: Spontaneous
  Country: US (occurrence: US)
  Receive Date: 20130307
  Receipt Date: 20130307
  Transmission Date: 20140127
  Serious: No
  Sender: FDA-Public Use
  Company Number: US-009507513-1302USA013262

PATIENT
  Sex: Female

DRUGS (1)
  1. HYZAAR [Suspect]

REACTIONS (2)
  - Pain [Unknown]
  - Local swelling [Unknown]
